FAERS Safety Report 12700333 (Version 1)
Quarter: 2016Q3

REPORT INFORMATION
  Report Type: Spontaneous
  Country: US (occurrence: US)
  Receive Date: 20160830
  Receipt Date: 20160830
  Transmission Date: 20161109
  Serious: No
  Sender: FDA-Public Use
  Company Number: US-SA-2015SA188510

PATIENT
  Age: 41 Year
  Sex: Female

DRUGS (29)
  1. SULFAMETHOXAZOLE [Concomitant]
     Active Substance: SULFAMETHOXAZOLE
     Route: 048
     Dates: start: 20150127
  2. NABUMETONE. [Concomitant]
     Active Substance: NABUMETONE
     Route: 048
     Dates: start: 20140930
  3. PROMETHAZINE [Concomitant]
     Active Substance: PROMETHAZINE\PROMETHAZINE HYDROCHLORIDE
     Dates: start: 20140930
  4. ZITHROMAX [Concomitant]
     Active Substance: AZITHROMYCIN DIHYDRATE
     Dosage: 1 DOSE AS DIRECTED
     Dates: start: 20131014
  5. LEVOFLOXACIN. [Concomitant]
     Active Substance: LEVOFLOXACIN
     Route: 048
     Dates: start: 20150113
  6. AMOXICILLIN. [Concomitant]
     Active Substance: AMOXICILLIN
     Route: 048
     Dates: start: 20141126
  7. ZYRTEC [Concomitant]
     Active Substance: CETIRIZINE HYDROCHLORIDE
     Dosage: 1 DOSE AS DIRECTED
     Dates: start: 20121105
  8. MUCINEX [Concomitant]
     Active Substance: GUAIFENESIN
     Dates: start: 20121101
  9. FABRAZYME [Suspect]
     Active Substance: AGALSIDASE BETA
     Indication: LIPIDOSIS
     Route: 041
     Dates: start: 20121102
  10. DEXILANT [Concomitant]
     Active Substance: DEXLANSOPRAZOLE
     Dosage: 1 CAP
     Route: 048
     Dates: start: 20150909
  11. BIAXIN [Concomitant]
     Active Substance: CLARITHROMYCIN
     Dosage: 1 DOSE AS DIRECTED
     Dates: start: 20150817
  12. SINGULAIR [Concomitant]
     Active Substance: MONTELUKAST SODIUM
     Route: 048
     Dates: start: 20140116
  13. PAXIL [Concomitant]
     Active Substance: PAROXETINE HYDROCHLORIDE
     Dosage: 1 DOSE AS DIRECTED
     Dates: start: 20121101
  14. PRISTIQ EXTENDED-RELEASE [Concomitant]
     Active Substance: DESVENLAFAXINE SUCCINATE
     Dosage: 1 DOSE
     Route: 048
     Dates: start: 20150714
  15. LAMICTAL [Concomitant]
     Active Substance: LAMOTRIGINE
     Route: 048
     Dates: start: 20150113
  16. WELLBUTRIN [Concomitant]
     Active Substance: BUPROPION HYDROCHLORIDE
     Dates: start: 20141106
  17. FABRAZYME [Suspect]
     Active Substance: AGALSIDASE BETA
     Indication: LIPIDOSIS
     Route: 041
     Dates: start: 20121102
  18. COLESTIPOL [Concomitant]
     Active Substance: COLESTIPOL
     Dosage: 1 TAB
     Route: 048
     Dates: start: 20150922
  19. LAMOTRIGINE. [Concomitant]
     Active Substance: LAMOTRIGINE
     Dosage: 2 TAB
     Route: 048
     Dates: start: 20150714
  20. SPIRONOLACTONE. [Concomitant]
     Active Substance: SPIRONOLACTONE
     Route: 048
     Dates: start: 20150309
  21. METOPROLOL TARTRATE. [Concomitant]
     Active Substance: METOPROLOL TARTRATE
     Route: 048
     Dates: start: 20150309
  22. ONDANSETRON HYDROCHLORIDE. [Concomitant]
     Active Substance: ONDANSETRON HYDROCHLORIDE
     Dosage: 3 TIMES A DAY AS NEEDED
     Route: 048
     Dates: start: 20150113
  23. NORCO [Concomitant]
     Active Substance: ACETAMINOPHEN\HYDROCODONE BITARTRATE
     Route: 048
     Dates: start: 20140930
  24. CEFUROXIME. [Concomitant]
     Active Substance: CEFUROXIME
     Route: 048
     Dates: start: 20140603
  25. PROMETHAZINE [Concomitant]
     Active Substance: PROMETHAZINE\PROMETHAZINE HYDROCHLORIDE
     Route: 048
     Dates: start: 20140212
  26. ALPRAZOLAM. [Concomitant]
     Active Substance: ALPRAZOLAM
     Route: 048
     Dates: start: 20140208
  27. OMEPRAZOLE. [Concomitant]
     Active Substance: OMEPRAZOLE
     Route: 048
     Dates: start: 20140208
  28. PROTONIX [Concomitant]
     Active Substance: PANTOPRAZOLE SODIUM
     Route: 048
     Dates: start: 20151006
  29. PREDNISONE. [Concomitant]
     Active Substance: PREDNISONE
     Dosage: 1 DOSE AS DIRECTED
     Dates: start: 20131014

REACTIONS (1)
  - Infection [Unknown]

NARRATIVE: CASE EVENT DATE: 201511
